FAERS Safety Report 10173310 (Version 1)
Quarter: 2014Q2

REPORT INFORMATION
  Report Type: Report from Study
  Country: TR (occurrence: TR)
  Receive Date: 20140515
  Receipt Date: 20140515
  Transmission Date: 20141212
  Serious: Yes (Other)
  Sender: FDA-Public Use
  Company Number: TR-BAXTER-2014BAX023887

PATIENT
  Sex: 0

DRUGS (1)
  1. TISSEEL LYO 2 ML TROMBIN COZELTISI VE 2 ML FIBRINOJEN COZELTISI ICEREN [Suspect]
     Indication: BILIARY ANASTOMOSIS

REACTIONS (1)
  - Hepatorenal syndrome [Unknown]
